FAERS Safety Report 19173472 (Version 1)
Quarter: 2021Q2

REPORT INFORMATION
  Report Type: Spontaneous
  Country: CA (occurrence: CA)
  Receive Date: 20210423
  Receipt Date: 20210423
  Transmission Date: 20210717
  Serious: Yes (Life-Threatening)
  Sender: FDA-Public Use
  Company Number: CA-JNJFOC-20210441979

PATIENT
  Age: 27 Year
  Sex: Female

DRUGS (4)
  1. SULFASALAZINE. [Concomitant]
     Active Substance: SULFASALAZINE
     Route: 048
  2. INFLIXIMAB, RECOMBINANT [Suspect]
     Active Substance: INFLIXIMAB
     Indication: CROHN^S DISEASE
     Route: 042
  3. PREDNISONE. [Concomitant]
     Active Substance: PREDNISONE
     Route: 048
  4. IMODIUM [Concomitant]
     Active Substance: LOPERAMIDE HYDROCHLORIDE
     Route: 048

REACTIONS (3)
  - Condition aggravated [Unknown]
  - Arthralgia [Unknown]
  - Hypersensitivity [Unknown]
